FAERS Safety Report 16718671 (Version 1)
Quarter: 2019Q3

REPORT INFORMATION
  Report Type: Spontaneous
  Country: US (occurrence: US)
  Receive Date: 20190820
  Receipt Date: 20190820
  Transmission Date: 20191005
  Serious: Yes (Other)
  Sender: FDA-Public Use
  Company Number: US-SUN PHARMACEUTICAL INDUSTRIES LTD-2019R1-213057

PATIENT
  Age: 83 Year
  Sex: Female

DRUGS (4)
  1. INVELTYS [Suspect]
     Active Substance: LOTEPREDNOL ETABONATE
     Dosage: 1 GTT, QD
     Dates: start: 20190517, end: 20190521
  2. INVELTYS [Suspect]
     Active Substance: LOTEPREDNOL ETABONATE
     Indication: CATARACT OPERATION
     Dosage: 1 GTT, BID
     Dates: start: 20190510, end: 20190516
  3. BESIVANCE [Suspect]
     Active Substance: BESIFLOXACIN
     Indication: PRODUCT USED FOR UNKNOWN INDICATION
     Dosage: UNK
     Dates: end: 20190521
  4. BROMSITE [Suspect]
     Active Substance: BROMFENAC SODIUM
     Indication: PRODUCT USED FOR UNKNOWN INDICATION
     Dosage: UNK
     Dates: end: 20190521

REACTIONS (5)
  - Ocular toxicity [Recovered/Resolved]
  - Inappropriate schedule of product administration [Unknown]
  - Punctate keratitis [Recovering/Resolving]
  - Corneal irritation [Unknown]
  - Application site pain [Recovered/Resolved]

NARRATIVE: CASE EVENT DATE: 20190514
